FAERS Safety Report 12455297 (Version 1)
Quarter: 2016Q2

REPORT INFORMATION
  Report Type: Spontaneous
  Country: US (occurrence: None)
  Receive Date: 20160609
  Receipt Date: 20160609
  Transmission Date: 20160815
  Serious: Yes (Hospitalization)
  Sender: FDA-Public Use
  Company Number: None

PATIENT
  Age: 65 Year
  Sex: Male
  Weight: 92.1 kg

DRUGS (3)
  1. IDARUBICIN [Concomitant]
     Active Substance: IDARUBICIN
     Dates: end: 20160601
  2. PRAVASTATIN SODIUM. [Concomitant]
     Active Substance: PRAVASTATIN SODIUM
     Dates: end: 20160603
  3. CYTARABINE. [Suspect]
     Active Substance: CYTARABINE
     Dates: end: 20160602

REACTIONS (3)
  - Respiratory failure [None]
  - Pneumonia [None]
  - Atelectasis [None]

NARRATIVE: CASE EVENT DATE: 20160604
